FAERS Safety Report 16783239 (Version 1)
Quarter: 2019Q3

REPORT INFORMATION
  Report Type: Spontaneous
  Country: US (occurrence: US)
  Receive Date: 20190907
  Receipt Date: 20190907
  Transmission Date: 20191005
  Serious: No
  Sender: FDA-Public Use
  Company Number: US-ZYDUS-037680

PATIENT
  Age: 68 Year
  Sex: Female

DRUGS (3)
  1. MELOXICAM. [Suspect]
     Active Substance: MELOXICAM
     Indication: ROTATOR CUFF SYNDROME
     Route: 048
     Dates: start: 20190507, end: 20190517
  2. CALCIUM CARBONATE. [Concomitant]
     Active Substance: CALCIUM CARBONATE
     Indication: PRODUCT USED FOR UNKNOWN INDICATION
     Route: 065
  3. CYANOCOBALAMIN. [Concomitant]
     Active Substance: CYANOCOBALAMIN
     Indication: PRODUCT USED FOR UNKNOWN INDICATION
     Route: 065

REACTIONS (12)
  - Hypertension [Not Recovered/Not Resolved]
  - Abdominal discomfort [Recovered/Resolved]
  - Abdominal distension [Recovered/Resolved]
  - Weight increased [Recovered/Resolved]
  - Joint swelling [Recovered/Resolved]
  - Gastrointestinal disorder [Recovered/Resolved]
  - Flatulence [Recovered/Resolved]
  - Peripheral swelling [Recovered/Resolved]
  - Aphthous ulcer [Recovered/Resolved]
  - Limb discomfort [Recovered/Resolved]
  - Feeling abnormal [Recovered/Resolved]
  - Intentional dose omission [Recovered/Resolved]

NARRATIVE: CASE EVENT DATE: 201905
